FAERS Safety Report 11274481 (Version 1)
Quarter: 2015Q3

REPORT INFORMATION
  Report Type: Spontaneous
  Country: CH (occurrence: CH)
  Receive Date: 20150715
  Receipt Date: 20150715
  Transmission Date: 20151125
  Serious: Yes (Death, Hospitalization, Other)
  Sender: FDA-Public Use
  Company Number: CH-BAXTER-2015BAX037927

PATIENT
  Age: 53 Year
  Sex: Male
  Weight: 59 kg

DRUGS (11)
  1. CISPLATIN. [Suspect]
     Active Substance: CISPLATIN
     Indication: TESTIS CANCER
     Dosage: 3 TREATMENTS
     Route: 041
     Dates: start: 1994, end: 1994
  2. CELLTOP 100 MG/5 ML, SOLUTION INJECTABLE POUR PERFUSION [Suspect]
     Active Substance: ETOPOSIDE
     Indication: TESTICULAR CANCER METASTATIC
     Route: 041
     Dates: start: 20100125, end: 20100303
  3. IFEX [Suspect]
     Active Substance: IFOSFAMIDE
     Indication: TESTICULAR CANCER METASTATIC
     Route: 041
     Dates: start: 20091208, end: 20100110
  4. TAXOL [Suspect]
     Active Substance: PACLITAXEL
     Indication: TESTICULAR CANCER METASTATIC
     Route: 041
     Dates: start: 20091207, end: 20100107
  5. ASPIRINE [Suspect]
     Active Substance: ASPIRIN
     Indication: CORONARY ARTERY DISEASE
     Route: 048
     Dates: end: 20150310
  6. ATORVASTATIN [Concomitant]
     Active Substance: ATORVASTATIN
     Indication: PRODUCT USED FOR UNKNOWN INDICATION
     Route: 048
     Dates: end: 20150319
  7. METO ZEROK [Concomitant]
     Active Substance: METOPROLOL SUCCINATE
     Indication: PRODUCT USED FOR UNKNOWN INDICATION
     Route: 048
     Dates: end: 20150310
  8. CELLTOP 100 MG/5 ML, SOLUTION INJECTABLE POUR PERFUSION [Suspect]
     Active Substance: ETOPOSIDE
     Indication: TESTIS CANCER
     Dosage: 3 TREATMENTS
     Route: 041
     Dates: start: 1994, end: 1994
  9. CARBOPLATIN. [Suspect]
     Active Substance: CARBOPLATIN
     Indication: TESTICULAR CANCER METASTATIC
     Route: 041
     Dates: start: 20100125, end: 20100303
  10. PANTOPRAZOLE SODIUM. [Concomitant]
     Active Substance: PANTOPRAZOLE SODIUM
     Indication: PRODUCT USED FOR UNKNOWN INDICATION
     Route: 048
     Dates: end: 20150310
  11. BLEOMYCIN BAXTER, TROCKENSUBSTANZ ZUR PARENTERALEN ANWENDUNG [Suspect]
     Active Substance: BLEOMYCIN SULFATE
     Indication: TESTIS CANCER
     Dosage: 3 TREATMENTS
     Route: 041
     Dates: start: 1994, end: 1994

REACTIONS (9)
  - Metastases to lymph nodes [Unknown]
  - Renal cancer [Unknown]
  - Metastases to lung [Unknown]
  - Pancytopenia [Unknown]
  - Myelodysplastic syndrome [Not Recovered/Not Resolved]
  - Metastases to kidney [Unknown]
  - Haemoptysis [Fatal]
  - Colon cancer [Unknown]
  - Metastases to liver [Unknown]

NARRATIVE: CASE EVENT DATE: 20150310
